FAERS Safety Report 11497591 (Version 1)
Quarter: 2015Q3

REPORT INFORMATION
  Report Type: Report from Study
  Country: US (occurrence: US)
  Receive Date: 20150911
  Receipt Date: 20150911
  Transmission Date: 20151125
  Serious: No
  Sender: FDA-Public Use
  Company Number: US-009507513-1509USA002661

PATIENT
  Age: 47 Year
  Sex: Female

DRUGS (9)
  1. TRAMADOL HYDROCHLORIDE. [Interacting]
     Active Substance: TRAMADOL HYDROCHLORIDE
  2. OXYCODONE [Interacting]
     Active Substance: OXYCODONE
  3. DETROL [Interacting]
     Active Substance: TOLTERODINE TARTRATE
  4. OXYBUTYNIN [Interacting]
     Active Substance: OXYBUTYNIN
  5. ZOCOR [Interacting]
     Active Substance: SIMVASTATIN
     Route: 048
  6. LUPRON DEPOT [Interacting]
     Active Substance: LEUPROLIDE ACETATE
     Indication: UTERINE LEIOMYOMA
     Dosage: 3.75 MG, 1 IN 1 M
     Route: 030
     Dates: start: 201505
  7. SINGULAIR [Suspect]
     Active Substance: MONTELUKAST SODIUM
     Route: 048
  8. AMBIEN [Interacting]
     Active Substance: ZOLPIDEM TARTRATE
  9. OMEGA-3 MARINE TRIGLYCERIDES [Concomitant]
     Active Substance: FISH OIL

REACTIONS (10)
  - Dizziness [Unknown]
  - Micturition disorder [Unknown]
  - Drug interaction [Unknown]
  - Insomnia [Unknown]
  - Asthenia [Unknown]
  - Decreased appetite [Unknown]
  - Confusional state [Unknown]
  - Treatment noncompliance [Unknown]
  - Dry mouth [Unknown]
  - Weight decreased [Unknown]

NARRATIVE: CASE EVENT DATE: 20150803
